FAERS Safety Report 15536970 (Version 4)
Quarter: 2018Q4

REPORT INFORMATION
  Report Type: Spontaneous
  Country: BR (occurrence: BR)
  Receive Date: 20181022
  Receipt Date: 20181231
  Transmission Date: 20190205
  Serious: Yes (Life-Threatening, Hospitalization, Other)
  Sender: FDA-Public Use
  Company Number: BR-ROCHE-2201059

PATIENT
  Age: 59 Year
  Sex: Female
  Weight: 68.7 kg

DRUGS (21)
  1. AVASTIN [Suspect]
     Active Substance: BEVACIZUMAB
     Dosage: DILUTED IN SALINE SOLUTION AND INFUSED FOR 60 MIN.
     Route: 042
  2. GENLIBBS [Suspect]
     Active Substance: GEMCITABINE HYDROCHLORIDE
     Dosage: DILUTED IN 250 ML OF SALINE SOLUTION
     Route: 042
     Dates: start: 20180725
  3. CO-RENITEC [Concomitant]
     Active Substance: ENALAPRIL\HYDROCHLOROTHIAZIDE
     Route: 065
  4. ALENDRONATE [Concomitant]
     Active Substance: ALENDRONATE SODIUM
     Route: 065
  5. FAULDCARBO [Suspect]
     Active Substance: CARBOPLATIN
     Indication: OVARIAN CANCER
     Dosage: DILUTED IN GLYCOSE SOLUTION AND INFUSED FOR 1 HR.
     Route: 042
  6. FAULDCARBO [Suspect]
     Active Substance: CARBOPLATIN
     Dosage: DILUTED IN IN 500 OF GLYCOSE GS) 5% SOLUTION AND INFUSED FOR 1 HR.
     Route: 042
  7. FAULDCARBO [Suspect]
     Active Substance: CARBOPLATIN
     Dosage: DILUTED IN 500 ML OF GLUCOSE SALINE SOLUTION 5%
     Route: 042
     Dates: start: 20180725
  8. PALONOSETRON. [Concomitant]
     Active Substance: PALONOSETRON HYDROCHLORIDE
     Dosage: AT D1
     Route: 042
  9. PROPRANOLOL [Concomitant]
     Active Substance: PROPRANOLOL HYDROCHLORIDE
     Route: 065
  10. FAULDCARBO [Suspect]
     Active Substance: CARBOPLATIN
     Dosage: D1 OF 6 CYCLES
     Route: 042
  11. GENLIBBS [Suspect]
     Active Substance: GEMCITABINE HYDROCHLORIDE
     Indication: OVARIAN CANCER
     Dosage: DILUTED IN SALINE SOLUTION AND INFUSED FOR 30 MIN.
     Route: 042
  12. EMEND [Concomitant]
     Active Substance: APREPITANT
     Dosage: AT D1
     Route: 042
  13. CO-RENITEC [Concomitant]
     Active Substance: ENALAPRIL\HYDROCHLOROTHIAZIDE
     Route: 065
  14. AVASTIN [Suspect]
     Active Substance: BEVACIZUMAB
     Dosage: D1 OF 6 CYCLES
     Route: 042
  15. FAULDCARBO [Suspect]
     Active Substance: CARBOPLATIN
     Dosage: DILUTED IN GLYCOSE SOLUTION AND INFUSED FOR 1 HR.
     Route: 042
  16. GENLIBBS [Suspect]
     Active Substance: GEMCITABINE HYDROCHLORIDE
     Dosage: DILUTED IN SALINE SOLUTION AND INFUSED FOR 30 MIN.
     Route: 042
  17. GENLIBBS [Suspect]
     Active Substance: GEMCITABINE HYDROCHLORIDE
     Dosage: DILUTED IN 250ML SALINE SOLUTION AND INFUSED FOR 30 MIN.?D1 AND D8 OF 6 CYCLES
     Route: 042
  18. AVASTIN [Suspect]
     Active Substance: BEVACIZUMAB
     Indication: OVARIAN CANCER
     Dosage: DILUTED IN SALINE SOLUTION AND INFUSED FOR 15 MIN.
     Route: 042
  19. AVASTIN [Suspect]
     Active Substance: BEVACIZUMAB
     Route: 042
     Dates: start: 20180725
  20. DEXAMETHASONE. [Concomitant]
     Active Substance: DEXAMETHASONE
     Dosage: AT D1 AND D8
     Route: 042
  21. AVASTIN [Suspect]
     Active Substance: BEVACIZUMAB
     Dosage: DILUTED IN SALINE SOLUTION AND INFUSED FOR 15 MIN.
     Route: 042

REACTIONS (2)
  - Neutropenia [Recovered/Resolved]
  - Anaemia [Recovered/Resolved]

NARRATIVE: CASE EVENT DATE: 20180829
